FAERS Safety Report 11108577 (Version 3)
Quarter: 2015Q2

REPORT INFORMATION
  Report Type: Spontaneous
  Country: IT (occurrence: IT)
  Receive Date: 20150513
  Receipt Date: 20150616
  Transmission Date: 20150821
  Serious: Yes (Other)
  Sender: FDA-Public Use
  Company Number: IT-ROCHE-1575375

PATIENT
  Age: 65 Year
  Sex: Male

DRUGS (4)
  1. FOLINIC ACID [Concomitant]
     Active Substance: LEUCOVORIN
     Indication: LUNG NEOPLASM MALIGNANT
     Route: 065
     Dates: start: 20150423, end: 20150425
  2. AVASTIN [Suspect]
     Active Substance: BEVACIZUMAB
     Indication: LUNG NEOPLASM MALIGNANT
     Route: 042
     Dates: start: 20150423, end: 20150423
  3. OXALIPLATIN. [Concomitant]
     Active Substance: OXALIPLATIN
     Indication: LUNG NEOPLASM MALIGNANT
     Route: 042
     Dates: start: 20150423, end: 20150425
  4. FLUOROURACIL. [Concomitant]
     Active Substance: FLUOROURACIL
     Indication: LUNG NEOPLASM MALIGNANT
     Route: 042
     Dates: start: 20150423, end: 20150425

REACTIONS (3)
  - Proctitis [Unknown]
  - Ulcer [Unknown]
  - Haemorrhage [Unknown]

NARRATIVE: CASE EVENT DATE: 20150430
